FAERS Safety Report 17421351 (Version 2)
Quarter: 2020Q2

REPORT INFORMATION
  Report Type: Spontaneous
  Country: US (occurrence: US)
  Receive Date: 20200214
  Receipt Date: 20200402
  Transmission Date: 20200713
  Serious: Yes (Death)
  Sender: FDA-Public Use
  Company Number: US-BAYER-2020-025899

PATIENT
  Age: 59 Year
  Sex: Male

DRUGS (6)
  1. BAYER LOW DOSE [Interacting]
     Active Substance: ASPIRIN
     Indication: ISCHAEMIC HEART DISEASE PROPHYLAXIS
  2. BAYER LOW DOSE [Interacting]
     Active Substance: ASPIRIN
     Indication: CHILLS
  3. BAYER LOW DOSE [Interacting]
     Active Substance: ASPIRIN
     Indication: PAIN
  4. BAYER LOW DOSE [Suspect]
     Active Substance: ASPIRIN
     Indication: CEREBROVASCULAR ACCIDENT PROPHYLAXIS
     Dosage: 81 MG, QD
     Route: 048
     Dates: start: 201811, end: 20190726
  5. BAYER LOW DOSE [Interacting]
     Active Substance: ASPIRIN
     Indication: PYREXIA
  6. APIXABAN [Interacting]
     Active Substance: APIXABAN
     Dosage: UNK
     Route: 048
     Dates: start: 20190527, end: 20190726

REACTIONS (3)
  - Product use in unapproved indication [None]
  - Haemorrhagic stroke [Fatal]
  - Labelled drug-drug interaction medication error [Fatal]

NARRATIVE: CASE EVENT DATE: 201811
